FAERS Safety Report 24461617 (Version 1)
Quarter: 2024Q4

REPORT INFORMATION
  Report Type: Spontaneous
  Country: GR (occurrence: GR)
  Receive Date: 20241018
  Receipt Date: 20241018
  Transmission Date: 20250114
  Serious: No
  Sender: ROCHE
  Company Number: GR-ROCHE-3529851

PATIENT
  Age: 72 Year
  Sex: Male

DRUGS (9)
  1. RITUXIMAB [Suspect]
     Active Substance: RITUXIMAB
     Indication: Retinopathy
     Dosage: ON DAY 1, (DRC REGIMEN) ADMINISTERED EVERY 3 WEEKS FOR 6 CYCLES.
     Route: 042
  2. DEXAMETHASONE [Suspect]
     Active Substance: DEXAMETHASONE
     Indication: Retinopathy
     Dosage: ON DAY 1, (DRC REGIMEN) ADMINISTERED EVERY 3 WEEKS FOR 6 CYCLES.
     Route: 065
  3. CYCLOPHOSPHAMIDE [Suspect]
     Active Substance: CYCLOPHOSPHAMIDE
     Indication: Retinopathy
     Dosage: DAYS 1 TO 5 ADMINISTERED FOR 6 CYCLES.
     Route: 065
  4. LEVOTHYROXINE [Concomitant]
     Active Substance: LEVOTHYROXINE
  5. ASPIRIN [Concomitant]
     Active Substance: ASPIRIN
  6. ATORVASTATIN [Concomitant]
     Active Substance: ATORVASTATIN
  7. OLMESARTAN [Concomitant]
     Active Substance: OLMESARTAN
  8. AMLODIPINE [Concomitant]
     Active Substance: AMLODIPINE BESYLATE
  9. HYDROCHLOROTHIAZIDE [Concomitant]
     Active Substance: HYDROCHLOROTHIAZIDE

REACTIONS (1)
  - Gastrointestinal toxicity [Unknown]
